FAERS Safety Report 9187836 (Version 1)
Quarter: 2013Q1

REPORT INFORMATION
  Report Type: Spontaneous
  Country: US (occurrence: US)
  Receive Date: 20130325
  Receipt Date: 20130325
  Transmission Date: 20140127
  Serious: No
  Sender: FDA-Public Use
  Company Number: US-MYLANLABS-2012S1011402

PATIENT
  Age: 46 Year
  Sex: Male
  Weight: 80.74 kg

DRUGS (3)
  1. FENTANYL TRANSDERMAL SYSTEM [Suspect]
     Indication: PAIN
     Dosage: Q48H
     Route: 062
     Dates: start: 2011
  2. PERCOCET [Concomitant]
     Indication: PAIN
  3. ONDANSETRON [Concomitant]
     Indication: NAUSEA

REACTIONS (3)
  - Restlessness [Not Recovered/Not Resolved]
  - Nausea [Not Recovered/Not Resolved]
  - Anxiety [Not Recovered/Not Resolved]
